FAERS Safety Report 4285621-1 (Version None)
Quarter: 2004Q1

REPORT INFORMATION
  Report Type: 
  Country: None (occurrence: None)
  Receive Date: 20040202
  Receipt Date: 20040120
  Transmission Date: 20041129
  Serious: Yes (Other)
  Sender: FDA-Public Use
  Company Number: 2004002698

PATIENT
  Sex: Female

DRUGS (6)
  1. NEURONTIN [Suspect]
     Indication: CONVULSION
     Dosage: 800 MG
  2. ZITHROMAX [Suspect]
     Indication: RHINITIS
     Dates: start: 20031201, end: 20040101
  3. ELAVIL [Suspect]
     Indication: NEUROPATHY
     Dosage: ORAL
     Route: 048
     Dates: start: 20030401, end: 20031209
  4. IBUPROFEN [Suspect]
     Indication: HEADACHE
     Dates: start: 20040101
  5. MOMETASONE FUROATE [Suspect]
     Indication: NASAL DISORDER
  6. CAFFEINE (CAFFEINE) [Suspect]
     Indication: ILL-DEFINED DISORDER
     Dosage: (DAILY), ORAL
     Route: 048

REACTIONS (19)
  - ASTHENIA [None]
  - BLOOD GLUCOSE FLUCTUATION [None]
  - CONVULSION [None]
  - DIZZINESS [None]
  - DRUG INTERACTION [None]
  - DYSGEUSIA [None]
  - EAR PAIN [None]
  - FATIGUE [None]
  - FLUID RETENTION [None]
  - GLUCOSE TOLERANCE DECREASED [None]
  - HEADACHE [None]
  - HYPOGLYCAEMIA [None]
  - IMPAIRED WORK ABILITY [None]
  - LETHARGY [None]
  - OEDEMA PERIPHERAL [None]
  - RHINITIS [None]
  - SOMNOLENCE [None]
  - THINKING ABNORMAL [None]
  - TREATMENT NONCOMPLIANCE [None]
